FAERS Safety Report 8530432-1 (Version None)
Quarter: 2012Q3

REPORT INFORMATION
  Report Type: 
  Country: None (occurrence: None)
  Receive Date: 20120723
  Receipt Date: 20120713
  Transmission Date: 20120928
  Serious: Yes (Other)
  Sender: FDA-Public Use
  Company Number: US-SANOFI-AVENTIS-2012SA050332

PATIENT
  Age: 81 Year
  Sex: Female

DRUGS (1)
  1. FEXOFENADINE HYDROCHLORIDE [Suspect]
     Route: 048
     Dates: start: 20110101

REACTIONS (2)
  - CATARACT OPERATION [None]
  - VISUAL IMPAIRMENT [None]
